FAERS Safety Report 12352519 (Version 1)
Quarter: 2016Q2

REPORT INFORMATION
  Report Type: Spontaneous
  Country: BR (occurrence: BR)
  Receive Date: 20160510
  Receipt Date: 20160510
  Transmission Date: 20160815
  Serious: Yes (Death, Hospitalization)
  Sender: FDA-Public Use
  Company Number: BR-CELGENEUS-BRA-2016050587

PATIENT
  Age: 77 Year
  Sex: Female
  Weight: 39.8 kg

DRUGS (2)
  1. VIDAZA [Suspect]
     Active Substance: AZACITIDINE
     Indication: MYELODYSPLASTIC SYNDROME
  2. VIDAZA [Suspect]
     Active Substance: AZACITIDINE
     Indication: THROMBOCYTOPENIA
     Route: 058

REACTIONS (2)
  - Febrile neutropenia [Not Recovered/Not Resolved]
  - Pulmonary sepsis [Fatal]

NARRATIVE: CASE EVENT DATE: 20151223
